FAERS Safety Report 7518839-2 (Version None)
Quarter: 2011Q2

REPORT INFORMATION
  Report Type: 
  Country: None (occurrence: None)
  Receive Date: 20110602
  Receipt Date: 20110521
  Transmission Date: 20111010
  Serious: Yes (Other)
  Sender: FDA-Public Use
  Company Number: US-RB-025676-11

PATIENT
  Age: 23 Year
  Sex: Female

DRUGS (1)
  1. DELSYM [Suspect]
     Route: 048

REACTIONS (4)
  - TACHYCARDIA [None]
  - DIZZINESS [None]
  - OVERDOSE [None]
  - DIARRHOEA [None]
